FAERS Safety Report 19632427 (Version 1)
Quarter: 2021Q3

REPORT INFORMATION
  Report Type: Spontaneous
  Country: US (occurrence: US)
  Receive Date: 20210728
  Receipt Date: 20210728
  Transmission Date: 20211014
  Serious: No
  Sender: FDA-Public Use
  Company Number: US-ELI_LILLY_AND_COMPANY-US202107012107

PATIENT
  Sex: Female

DRUGS (2)
  1. HUMATROPE [Suspect]
     Active Substance: SOMATROPIN
     Indication: SHORT STATURE
     Dosage: 0.9 MG, DAILY
     Route: 058
     Dates: start: 202006, end: 202006
  2. HUMATROPE [Suspect]
     Active Substance: SOMATROPIN
     Indication: AUTOIMMUNE THYROIDITIS
     Dosage: 1.2 MG, DAILY
     Route: 058
     Dates: start: 202008, end: 202104

REACTIONS (1)
  - Headache [Unknown]
